FAERS Safety Report 14412081 (Version 1)
Quarter: 2018Q1

REPORT INFORMATION
  Report Type: Spontaneous
  Country: US (occurrence: US)
  Receive Date: 20180117
  Receipt Date: 20180117
  Transmission Date: 20180509
  Serious: Yes (Other)
  Sender: FDA-Public Use
  Company Number: None

PATIENT
  Age: 7 Year
  Sex: Male
  Weight: 25.2 kg

DRUGS (3)
  1. OSELTAMIVIR [Suspect]
     Active Substance: OSELTAMIVIR
     Indication: INFLUENZA
     Dosage: ?          QUANTITY:1 CAPSULE(S);?
     Route: 048
     Dates: start: 20180115, end: 20180116
  2. IBUPROFEN. [Concomitant]
     Active Substance: IBUPROFEN
  3. TYLENOL [Concomitant]
     Active Substance: ACETAMINOPHEN

REACTIONS (5)
  - Screaming [None]
  - Abnormal behaviour [None]
  - Fear [None]
  - Hallucination [None]
  - Sleep disorder [None]

NARRATIVE: CASE EVENT DATE: 20180116
